FAERS Safety Report 4571212-1 (Version None)
Quarter: 2005Q1

REPORT INFORMATION
  Report Type: 
  Country: None (occurrence: None)
  Receive Date: 20050202
  Receipt Date: 20050113
  Transmission Date: 20050727
  Serious: Yes (Hospitalization, Other)
  Sender: FDA-Public Use
  Company Number: US_0410107353

PATIENT
  Age: 37 Year
  Sex: Female
  Weight: 60 kg

DRUGS (32)
  1. ZYPREXA [Suspect]
     Indication: DEPRESSION
     Dosage: 20 MG/1 AT BEDTIME
     Dates: start: 20021118, end: 20040315
  2. TORADOL [Concomitant]
  3. PROTONIX [Concomitant]
  4. FLAGYL (METRONIDAZOLE BENZOATE) [Concomitant]
  5. DURAGESIC [Concomitant]
  6. ACYCLOVIR [Concomitant]
  7. DEPAKOTE [Concomitant]
  8. FLUCONAZOLE [Concomitant]
  9. NICODERM [Concomitant]
  10. EFFEXOR [Concomitant]
  11. ACETAMINOPHEN [Concomitant]
  12. HYDROCODONE [Concomitant]
  13. DIPHENHYDRMAINE [Concomitant]
  14. LORAZEPAM [Concomitant]
  15. ZOFRAN [Concomitant]
  16. PHENERGAN [Concomitant]
  17. IMIPENEM [Concomitant]
  18. LASIX [Concomitant]
  19. VITAMIN K [Concomitant]
  20. POTASSIUM PHOSPHATES [Concomitant]
  21. DEMEROL [Concomitant]
  22. MULTI-VITAMIN [Concomitant]
  23. MEFOXIN [Concomitant]
  24. POTASSIUM CHLORIDE [Concomitant]
  25. CALCIUM GLUCONATE [Concomitant]
  26. PROCALAMINE [Concomitant]
  27. ALBUMIN (HUMAN) [Concomitant]
  28. PANCREASE (PANCRELIPASE) [Concomitant]
  29. TRICOR [Concomitant]
  30. VITAMIN B-12 [Concomitant]
  31. FOLIC ACID [Concomitant]
  32. SOMA [Concomitant]

REACTIONS (37)
  - ACTIVATED PARTIAL THROMBOPLASTIN TIME PROLONGED [None]
  - ASCITES [None]
  - BLOOD FIBRINOGEN INCREASED [None]
  - BLOOD TRIGLYCERIDES INCREASED [None]
  - CHEST PAIN [None]
  - CHOLELITHIASIS [None]
  - CONFUSIONAL STATE [None]
  - COUGH [None]
  - DIARRHOEA [None]
  - DYSPEPSIA [None]
  - DYSPNOEA [None]
  - DYSURIA [None]
  - FLUID IMBALANCE [None]
  - FOLATE DEFICIENCY [None]
  - HAEMATOCRIT DECREASED [None]
  - HAEMOGLOBIN DECREASED [None]
  - HALLUCINATION [None]
  - HYPERCALCAEMIA [None]
  - HYPERLIPIDAEMIA [None]
  - HYPOALBUMINAEMIA [None]
  - HYPOCALCAEMIA [None]
  - HYPOKALAEMIA [None]
  - INSOMNIA [None]
  - LACTIC ACIDOSIS [None]
  - LEUKOCYTOSIS [None]
  - METABOLIC ACIDOSIS [None]
  - PANCREATITIS [None]
  - PLEURAL EFFUSION [None]
  - PROTHROMBIN TIME PROLONGED [None]
  - PYREXIA [None]
  - TACHYCARDIA [None]
  - THROMBOCYTHAEMIA [None]
  - URINARY TRACT INFECTION FUNGAL [None]
  - VAGINAL HAEMORRHAGE [None]
  - VISUAL DISTURBANCE [None]
  - VITAMIN B12 DEFICIENCY [None]
  - WEIGHT INCREASED [None]
